FAERS Safety Report 18508457 (Version 2)
Quarter: 2020Q4

REPORT INFORMATION
  Report Type: Other
  Country: US (occurrence: US)
  Receive Date: 20201116
  Receipt Date: 20201118
  Transmission Date: 20210114
  Serious: Yes (Hospitalization)
  Sender: FDA-Public Use
  Company Number: US-ROCHE-2713553

PATIENT
  Age: 40 Year
  Sex: Female
  Weight: 157 kg

DRUGS (27)
  1. XOLAIR [Suspect]
     Active Substance: OMALIZUMAB
     Indication: ASTHMA
     Dosage: INJECT 150 MG SUBCUTANEOUSLY EVERY 4 WEEK(S)
     Route: 058
  2. XOLAIR [Suspect]
     Active Substance: OMALIZUMAB
  3. XOLAIR [Suspect]
     Active Substance: OMALIZUMAB
  4. DALIRESP [Concomitant]
     Active Substance: ROFLUMILAST
  5. FLUTICASONE. [Concomitant]
     Active Substance: FLUTICASONE
     Dosage: 1 SPRAY INTO EACH NOSTRIL DAILY
  6. PREDNISONE. [Concomitant]
     Active Substance: PREDNISONE
     Route: 048
  7. XOLAIR [Suspect]
     Active Substance: OMALIZUMAB
     Indication: ASTHMA
  8. LEVALBUTEROL. [Concomitant]
     Active Substance: LEVALBUTEROL
     Dosage: INHALE ONE OR TWO PUFFS INTO THE LUNGS EVERY SIX HOURS
  9. PREDNISONE. [Concomitant]
     Active Substance: PREDNISONE
     Route: 048
  10. XOLAIR [Suspect]
     Active Substance: OMALIZUMAB
  11. BUDESONIDE. [Concomitant]
     Active Substance: BUDESONIDE
  12. PREDNISONE. [Concomitant]
     Active Substance: PREDNISONE
     Route: 048
  13. XOLAIR [Suspect]
     Active Substance: OMALIZUMAB
  14. CETIRIZINE [Concomitant]
     Active Substance: CETIRIZINE HYDROCHLORIDE
     Route: 048
  15. XOLAIR [Suspect]
     Active Substance: OMALIZUMAB
  16. AZELASTINE. [Concomitant]
     Active Substance: AZELASTINE HYDROCHLORIDE
     Dosage: 2 SPRAYS, TWICE A DAY. USE ONCE IN EACH NOSTRIL
  17. LORAZEPAM. [Concomitant]
     Active Substance: LORAZEPAM
     Indication: ANXIETY
  18. MAGNESIUM OXIDE. [Concomitant]
     Active Substance: MAGNESIUM OXIDE
     Route: 048
  19. PREDNISONE. [Concomitant]
     Active Substance: PREDNISONE
     Dosage: TAKE WITH BREAKFEAST
  20. XOLAIR [Suspect]
     Active Substance: OMALIZUMAB
  21. CLONIDINE HCL [Concomitant]
     Active Substance: CLONIDINE HYDROCHLORIDE
  22. IPRATROPIUM/ALBUTEROL [Concomitant]
     Active Substance: ALBUTEROL\IPRATROPIUM
  23. AMOXICILLINE [Concomitant]
     Active Substance: AMOXICILLIN
     Route: 048
  24. XOLAIR [Suspect]
     Active Substance: OMALIZUMAB
     Indication: HYPERSENSITIVITY
  25. MONTELUKAST [Concomitant]
     Active Substance: MONTELUKAST SODIUM
     Dosage: NIGHTLY
     Route: 048
  26. PREDNISONE. [Concomitant]
     Active Substance: PREDNISONE
     Route: 048
  27. THEOPHYLLINE [Concomitant]
     Active Substance: THEOPHYLLINE ANHYDROUS
     Route: 048

REACTIONS (3)
  - Off label use [Unknown]
  - COVID-19 [Unknown]
  - Intentional product use issue [Unknown]

NARRATIVE: CASE EVENT DATE: 20201105
